FAERS Safety Report 5657827-8 (Version None)
Quarter: 2008Q1

REPORT INFORMATION
  Report Type: 
  Country: None (occurrence: None)
  Receive Date: 20080305
  Receipt Date: 20080215
  Transmission Date: 20080703
  Serious: Yes (Disabling, Other)
  Sender: FDA-Public Use
  Company Number: DSA_31507_2008

PATIENT
  Age: 73 Year
  Sex: Female

DRUGS (5)
  1. MONO-TILDIEM (MONO-TILDIEM SLOW RELEASE-DILTIAZEM HYDROCHLORIDE) 200 M [Suspect]
     Indication: DRUG USE FOR UNKNOWN INDICATION
     Dosage: 200 MG QD ORAL
     Route: 048
     Dates: start: 20070401
  2. ACTONEL [Concomitant]
  3. OSTRAM [Concomitant]
  4. COKENZEN [Concomitant]
  5. OPHTIM [Concomitant]

REACTIONS (2)
  - MYELOPATHY [None]
  - SPEECH DISORDER [None]
